FAERS Safety Report 19619852 (Version 3)
Quarter: 2022Q1

REPORT INFORMATION
  Report Type: Spontaneous
  Country: US (occurrence: None)
  Receive Date: 20210728
  Receipt Date: 20220202
  Transmission Date: 20220423
  Serious: Yes (Other)
  Sender: FDA-Public Use
  Company Number: US-ROCHE-2668609

PATIENT
  Sex: Female

DRUGS (5)
  1. XELODA [Suspect]
     Active Substance: CAPECITABINE
     Indication: Breast cancer female
     Dosage: TWICE A DAY FOR 14 DAYS WITH 7 DAYS OFF
     Route: 048
     Dates: start: 20200825
  2. TUKYSA [Suspect]
     Active Substance: TUCATINIB
     Indication: Breast cancer female
     Route: 048
  3. TUKYSA [Suspect]
     Active Substance: TUCATINIB
     Route: 048
  4. TUKYSA [Suspect]
     Active Substance: TUCATINIB
     Route: 048
  5. TUKYSA [Suspect]
     Active Substance: TUCATINIB
     Route: 048

REACTIONS (23)
  - Fatigue [Unknown]
  - Nausea [Unknown]
  - Dysgeusia [Unknown]
  - Acne [Unknown]
  - Asthenia [Unknown]
  - Dry skin [Unknown]
  - Skin exfoliation [Unknown]
  - Gastric dilatation [Unknown]
  - Ill-defined disorder [Unknown]
  - Urinary tract infection [Unknown]
  - Weight increased [Unknown]
  - Abdominal distension [Unknown]
  - Palmar-plantar erythrodysaesthesia syndrome [Unknown]
  - Cognitive disorder [Unknown]
  - Gingival bleeding [Unknown]
  - Weight loss poor [Unknown]
  - Dizziness [Unknown]
  - Ill-defined disorder [Unknown]
  - Headache [Unknown]
  - Fall [Unknown]
  - Ingrowing nail [Unknown]
  - Lung neoplasm [Unknown]
  - Tinea pedis [Unknown]
